FAERS Safety Report 8556390-1 (Version None)
Quarter: 2012Q3

REPORT INFORMATION
  Report Type: 
  Country: None (occurrence: None)
  Receive Date: 20120801
  Receipt Date: 20120726
  Transmission Date: 20120928
  Serious: Yes (Hospitalization)
  Sender: FDA-Public Use
  Company Number: PHHY2012NL064414

PATIENT
  Sex: Female

DRUGS (1)
  1. COMBIPATCH [Suspect]
     Indication: POSTMENOPAUSE
     Dosage: 1 DF, QW2
     Route: 062

REACTIONS (3)
  - SYNCOPE [None]
  - BLOOD PRESSURE INCREASED [None]
  - HYPERTENSIVE CRISIS [None]
